FAERS Safety Report 4839123-1 (Version None)
Quarter: 2005Q4

REPORT INFORMATION
  Report Type: 
  Country: None (occurrence: None)
  Receive Date: 20051129
  Receipt Date: 20051123
  Transmission Date: 20060501
  Serious: Yes (Hospitalization)
  Sender: FDA-Public Use
  Company Number: IT-GLAXOSMITHKLINE-B0401669A

PATIENT
  Age: 80 Year
  Sex: Female

DRUGS (3)
  1. DIGOXIN [Suspect]
     Indication: ATRIAL FIBRILLATION
     Dosage: 250U PER DAY
     Route: 048
     Dates: start: 20050801, end: 20050918
  2. TICLOPIDINE HCL [Concomitant]
  3. VERAPAMIL HYDROCHLORIDE [Concomitant]

REACTIONS (3)
  - DISORIENTATION [None]
  - DYSARTHRIA [None]
  - VOMITING [None]
